FAERS Safety Report 4532264-8 (Version None)
Quarter: 2004Q4

REPORT INFORMATION
  Report Type: 
  Country: None (occurrence: None)
  Receive Date: 20041206
  Receipt Date: 20040917
  Transmission Date: 20050328
  Serious: No
  Sender: FDA-Public Use
  Company Number: USA040978646

PATIENT
  Age: 51 Year
  Sex: Female
  Weight: 105 kg

DRUGS (1)
  1. CYMBALTA [Suspect]
     Dosage: 60 MG DAY
     Dates: start: 20040916

REACTIONS (4)
  - EXCITABILITY [None]
  - INSOMNIA [None]
  - STOMACH DISCOMFORT [None]
  - THINKING ABNORMAL [None]
